FAERS Safety Report 5982464-5 (Version None)
Quarter: 2008Q4

REPORT INFORMATION
  Report Type: 
  Country: None (occurrence: None)
  Receive Date: 20081208
  Receipt Date: 20081204
  Transmission Date: 20090506
  Serious: Yes (Other)
  Sender: FDA-Public Use
  Company Number: US-BRISTOL-MYERS SQUIBB COMPANY-14366876

PATIENT
  Age: 35 Year
  Sex: Female
  Weight: 52 kg

DRUGS (2)
  1. ABILIFY [Suspect]
     Indication: BIPOLAR DISORDER
     Dosage: STARTED BEFORE DEC07.
     Route: 048
  2. WELLBUTRIN XL [Concomitant]
     Dosage: STARTED BEFORE DEC07.

REACTIONS (2)
  - ABORTION SPONTANEOUS [None]
  - PREGNANCY [None]
